FAERS Safety Report 4877024-3 (Version None)
Quarter: 2005Q4

REPORT INFORMATION
  Report Type: 
  Country: None (occurrence: None)
  Receive Date: 20051206
  Receipt Date: 20050818
  Transmission Date: 20060501
  Serious: No
  Sender: FDA-Public Use
  Company Number: USA0508105331

PATIENT
  Age: 55 Year
  Sex: Female
  Weight: 68 kg

DRUGS (6)
  1. CYMBALTA [Suspect]
     Indication: DEPRESSION
     Dosage: 180 MG DAY
     Dates: start: 20050601
  2. XANAX [Concomitant]
  3. SYNTHROID [Concomitant]
  4. METHOTREXATE [Concomitant]
  5. ARAVA [Concomitant]
  6. SEROQUEL [Concomitant]

REACTIONS (8)
  - ACCIDENTAL OVERDOSE [None]
  - AGITATION [None]
  - CRYING [None]
  - DEPRESSION [None]
  - FOOD INTOLERANCE [None]
  - GLOSSODYNIA [None]
  - INSOMNIA [None]
  - MEDICATION ERROR [None]
